FAERS Safety Report 5149181-5 (Version None)
Quarter: 2006Q4

REPORT INFORMATION
  Report Type: 
  Country: None (occurrence: None)
  Receive Date: 20061113
  Receipt Date: 20060825
  Transmission Date: 20070319
  Serious: No
  Sender: FDA-Public Use
  Company Number: US-GLAXOSMITHKLINE-A0618083A

PATIENT
  Sex: Male

DRUGS (2)
  1. COREG [Suspect]
     Dosage: 3.125MG TWICE PER DAY
     Route: 048
     Dates: start: 20060401
  2. MULTIPLE MEDICATIONS [Concomitant]

REACTIONS (1)
  - HYPOTENSION [None]
